FAERS Safety Report 4373511-5 (Version None)
Quarter: 2004Q1

REPORT INFORMATION
  Report Type: 
  Country: None (occurrence: None)
  Receive Date: 20040305
  Receipt Date: 20031112
  Transmission Date: 20041129
  Serious: Yes (Other)
  Sender: FDA-Public Use
  Company Number: 2003UW14914

PATIENT
  Age: 47 Year
  Sex: Female

DRUGS (4)
  1. CRESTOR [Suspect]
     Dates: start: 20031021
  2. PREVACID [Concomitant]
  3. ZOLOFT [Concomitant]
  4. XANAX [Concomitant]

REACTIONS (6)
  - ANXIETY [None]
  - BLOOD GLUCOSE DECREASED [None]
  - CHILLS [None]
  - HORMONE LEVEL ABNORMAL [None]
  - MENSTRUATION IRREGULAR [None]
  - NIGHT SWEATS [None]
